FAERS Safety Report 4737164-6 (Version None)
Quarter: 2005Q3

REPORT INFORMATION
  Report Type: 
  Country: None (occurrence: None)
  Receive Date: 20050728
  Receipt Date: 20050504
  Transmission Date: 20060218
  Serious: No
  Sender: FDA-Public Use
  Company Number: 200513852US

PATIENT
  Sex: Female

DRUGS (3)
  1. KETEK [Suspect]
     Indication: PHARYNGOLARYNGEAL PAIN
     Dosage: QD PO
     Route: 048
     Dates: start: 20050502, end: 20050503
  2. SIMVASTATIN [Concomitant]
  3. PHENOBARBITAL TAB [Concomitant]

REACTIONS (2)
  - DIZZINESS [None]
  - DYSPNOEA [None]
